FAERS Safety Report 4597598-X (Version None)
Quarter: 2005Q1

REPORT INFORMATION
  Report Type: 
  Country: None (occurrence: None)
  Receive Date: 20050303
  Receipt Date: 20050222
  Transmission Date: 20050727
  Serious: Yes (Death)
  Sender: FDA-Public Use
  Company Number: AU-NOVOPROD-242480

PATIENT

DRUGS (1)
  1. NOVOSEVEN [Suspect]
     Indication: CARDIAC OPERATION

REACTIONS (1)
  - THROMBOSIS [None]
